FAERS Safety Report 21167724 (Version 1)
Quarter: 2022Q3

REPORT INFORMATION
  Report Type: Spontaneous
  Country: NL (occurrence: NL)
  Receive Date: 20220803
  Receipt Date: 20220803
  Transmission Date: 20221027
  Serious: Yes (Other)
  Sender: FDA-Public Use
  Company Number: None

PATIENT
  Sex: Female
  Weight: 53 kg

DRUGS (3)
  1. METHYLPHENIDATE HYDROCHLORIDE [Suspect]
     Active Substance: METHYLPHENIDATE HYDROCHLORIDE
     Indication: Attention deficit hyperactivity disorder
     Dosage: 2X PER DAY 5 MG (BID), 12 HOURS
     Route: 065
     Dates: start: 2022
  2. METHYLPHENIDATE HYDROCHLORIDE [Suspect]
     Active Substance: METHYLPHENIDATE HYDROCHLORIDE
     Indication: Attention deficit hyperactivity disorder
     Dosage: 1X PER DAY 10MG
     Route: 065
     Dates: start: 2022
  3. METHYLPHENIDATE HYDROCHLORIDE [Suspect]
     Active Substance: METHYLPHENIDATE HYDROCHLORIDE
     Indication: Attention deficit hyperactivity disorder
     Dosage: 2X PER DAY 1 TABLET (BID), 12 HOURS
     Route: 065
     Dates: start: 20220522

REACTIONS (7)
  - Suicidal ideation [Recovering/Resolving]
  - Photophobia [Not Recovered/Not Resolved]
  - Dysuria [Not Recovered/Not Resolved]
  - Thirst [Not Recovered/Not Resolved]
  - Headache [Recovered/Resolved]
  - Diarrhoea [Recovered/Resolved]
  - Hyperhidrosis [Not Recovered/Not Resolved]
